FAERS Safety Report 8006067-6 (Version None)
Quarter: 2011Q4

REPORT INFORMATION
  Report Type: 
  Country: None (occurrence: None)
  Receive Date: 20111226
  Receipt Date: 20111214
  Transmission Date: 20120403
  Serious: Yes (Hospitalization)
  Sender: FDA-Public Use
  Company Number: US-BIOGENIDEC-2011BI047815

PATIENT
  Age: 47 Year
  Sex: Female

DRUGS (1)
  1. TYSABRI [Suspect]
     Indication: MULTIPLE SCLEROSIS
     Route: 042
     Dates: start: 20080415

REACTIONS (6)
  - CENTRAL NERVOUS SYSTEM LESION [None]
  - SUTURE INSERTION [None]
  - MULTIPLE SCLEROSIS RELAPSE [None]
  - CLAVICLE FRACTURE [None]
  - BRAIN OEDEMA [None]
  - RIB FRACTURE [None]
